FAERS Safety Report 5494483-6 (Version None)
Quarter: 2007Q4

REPORT INFORMATION
  Report Type: 
  Country: None (occurrence: None)
  Receive Date: 20071023
  Receipt Date: 20071023
  Transmission Date: 20080405
  Serious: Yes (Hospitalization)
  Sender: FDA-Public Use
  Company Number: None

PATIENT
  Sex: Male

DRUGS (2)
  1. OXALIPLATIN [Suspect]
     Indication: GASTRIC CANCER
     Dosage: 170 MG   D1+15 Q 28 DAYS  IV DRIP
     Route: 041
     Dates: start: 20070412, end: 20071004
  2. XELODA [Suspect]
     Indication: GASTRIC CANCER
     Dosage: 1500 MG  D1-7+15-21 Q28 DAY PO
     Route: 048
     Dates: start: 20070412, end: 20070903

REACTIONS (2)
  - CHRONIC OBSTRUCTIVE PULMONARY DISEASE [None]
  - PNEUMOTHORAX [None]
